FAERS Safety Report 4325654-X (Version None)
Quarter: 2004Q1

REPORT INFORMATION
  Report Type: 
  Country: None (occurrence: None)
  Receive Date: 20040324
  Receipt Date: 20040309
  Transmission Date: 20041129
  Serious: Yes (Other)
  Sender: FDA-Public Use
  Company Number: USA040259926

PATIENT
  Age: 38 Year
  Sex: Male

DRUGS (3)
  1. XIGRIS [Suspect]
     Indication: PNEUMONIA STREPTOCOCCAL
     Dates: start: 20030220, end: 20030223
  2. XIGRIS [Suspect]
     Indication: STREPTOCOCCAL SEPSIS
     Dates: start: 20030220, end: 20030223
  3. HEPARIN [Concomitant]

REACTIONS (2)
  - ACTIVATED PARTIAL THROMBOPLASTIN TIME PROLONGED [None]
  - PLATELET COUNT DECREASED [None]
